FAERS Safety Report 13758730 (Version 8)
Quarter: 2018Q3

REPORT INFORMATION
  Report Type: Report from Study
  Country: BR (occurrence: BR)
  Receive Date: 20170717
  Receipt Date: 20180830
  Transmission Date: 20181010
  Serious: Yes (Hospitalization, Other)
  Sender: FDA-Public Use
  Company Number: PHHY2017BR102446

PATIENT
  Age: 56 Year
  Sex: Male
  Weight: 83 kg

DRUGS (5)
  1. SANDOSTATIN LAR DEPOT [Suspect]
     Active Substance: OCTREOTIDE ACETATE
     Dosage: 20 MG, Q3W
     Route: 030
  2. SANDOSTATIN LAR DEPOT [Suspect]
     Active Substance: OCTREOTIDE ACETATE
     Indication: NEUROENDOCRINE TUMOUR
     Dosage: 20 MG, QMO
     Route: 030
     Dates: start: 2012
  3. LEVOTHYROXINE. [Concomitant]
     Active Substance: LEVOTHYROXINE
     Indication: HYPOTHYROIDISM
     Dosage: 125 MG, UNK
     Route: 065
     Dates: start: 1980
  4. SANDOSTATIN LAR DEPOT [Suspect]
     Active Substance: OCTREOTIDE ACETATE
     Dosage: 20 MG, EVERY 28 DAYS
     Route: 030
     Dates: start: 20170614
  5. METHADONE [Concomitant]
     Active Substance: METHADONE HYDROCHLORIDE
     Indication: SPINAL PAIN
     Dosage: 10 MG, BID
     Route: 048

REACTIONS (22)
  - Malaise [Not Recovered/Not Resolved]
  - Micturition urgency [Unknown]
  - Blood pressure increased [Unknown]
  - Thirst [Recovered/Resolved]
  - Diarrhoea [Not Recovered/Not Resolved]
  - Abdominal pain [Recovered/Resolved]
  - Ejaculation disorder [Unknown]
  - Orchitis [Unknown]
  - Nausea [Recovered/Resolved]
  - Helminthic infection [Unknown]
  - Hypertension [Recovered/Resolved]
  - Inappropriate schedule of drug administration [Unknown]
  - Oliguria [Recovered/Resolved]
  - Urinary tract infection [Recovered/Resolved]
  - Skin burning sensation [Not Recovered/Not Resolved]
  - Somnolence [Unknown]
  - Poor quality sleep [Unknown]
  - Constipation [Recovered/Resolved]
  - Chromaturia [Recovered/Resolved]
  - Pain [Unknown]
  - Testicular swelling [Not Recovered/Not Resolved]
  - Dysuria [Recovered/Resolved]

NARRATIVE: CASE EVENT DATE: 201805
